FAERS Safety Report 7428893-4 (Version None)
Quarter: 2011Q2

REPORT INFORMATION
  Report Type: 
  Country: None (occurrence: None)
  Receive Date: 20110412
  Receipt Date: 20110328
  Transmission Date: 20111010
  Serious: Yes (Other)
  Sender: FDA-Public Use
  Company Number: AUR-APL-2011-01123

PATIENT
  Age: 95 Year
  Sex: Male

DRUGS (7)
  1. FENTANYL [Concomitant]
  2. LYRICA [Suspect]
     Dosage: 25MG-DAILY-ORAL
     Route: 048
     Dates: start: 20110219
  3. LISINOPRIL [Suspect]
     Indication: HYPERTENSION
     Dosage: 5MG-DAILY-ORAL
     Route: 048
     Dates: start: 20060619
  4. LISINOPRIL [Suspect]
     Indication: HYPERTENSION
     Dosage: 2.5 MG-DAILY-ORAL
     Route: 048
     Dates: start: 20060522, end: 20060618
  5. ACETAMINOPHEN [Concomitant]
  6. AMITRIPTYLINE HCL [Concomitant]
  7. OMEPRAZOLE [Concomitant]

REACTIONS (5)
  - DRUG DOSE OMISSION [None]
  - DEPRESSION [None]
  - SYNCOPE [None]
  - HALLUCINATION [None]
  - FALL [None]
